FAERS Safety Report 21607726 (Version 2)
Quarter: 2022Q4

REPORT INFORMATION
  Report Type: Spontaneous
  Country: SK (occurrence: SK)
  Receive Date: 20221117
  Receipt Date: 20221208
  Transmission Date: 20230113
  Serious: Yes (Other)
  Sender: FDA-Public Use
  Company Number: SK-BAYER-2022P021416

PATIENT
  Sex: Male

DRUGS (4)
  1. EYLEA [Suspect]
     Active Substance: AFLIBERCEPT
     Indication: Product used for unknown indication
     Dosage: UNK; SOLUTION FOR INJECTION; 40 MG/ML
     Route: 031
     Dates: start: 20220608
  2. MOXIFLOXACIN [Concomitant]
     Active Substance: MOXIFLOXACIN
     Indication: Product used for unknown indication
  3. CIPROFLOXACIN [Concomitant]
     Active Substance: CIPROFLOXACIN
     Indication: Product used for unknown indication
  4. DEXAMED [DEXAMETHASONE] [Concomitant]
     Indication: Product used for unknown indication

REACTIONS (8)
  - Blindness [Unknown]
  - Hypopyon [Unknown]
  - Endophthalmitis [Unknown]
  - Blepharospasm [Unknown]
  - Corneal disorder [Unknown]
  - Hyperkeratosis [Unknown]
  - Lacrimation increased [Unknown]
  - Anterior chamber flare [Unknown]
